FAERS Safety Report 19909627 (Version 1)
Quarter: 2021Q4

REPORT INFORMATION
  Report Type: Spontaneous
  Country: CN (occurrence: CN)
  Receive Date: 20211001
  Receipt Date: 20211001
  Transmission Date: 20220303
  Serious: Yes (Hospitalization, Other)
  Sender: FDA-Public Use
  Company Number: CN-BAXTER-2021BAX026454

PATIENT
  Age: 4 Year
  Sex: Male
  Weight: 17.1 kg

DRUGS (16)
  1. CYCLOPHOSPHAMIDE [Suspect]
     Active Substance: CYCLOPHOSPHAMIDE
     Indication: Neuroblastoma recurrent
     Dosage: CYCLOPHOSPHAMIDE 170 MG + 0.9% NS 41 ML
     Route: 041
     Dates: start: 20210522, end: 20210526
  2. CYCLOPHOSPHAMIDE [Suspect]
     Active Substance: CYCLOPHOSPHAMIDE
     Dosage: DOSE RE-INTRODUCED; CYCLOPHOSPHAMIDE + 0.9% NS
     Route: 041
  3. CYCLOPHOSPHAMIDE [Suspect]
     Active Substance: CYCLOPHOSPHAMIDE
     Dosage: PRIOR DRUG
     Route: 041
  4. SODIUM CHLORIDE [Suspect]
     Active Substance: SODIUM CHLORIDE
     Indication: Medication dilution
     Dosage: CYCLOPHOSPHAMIDE 170 MG + 0.9% NS 41 ML
     Route: 041
     Dates: start: 20210522, end: 20210526
  5. SODIUM CHLORIDE [Suspect]
     Active Substance: SODIUM CHLORIDE
     Dosage: DOSE RE-INTRODUCED; CYCLOPHOSPHAMIDE 170 MG + 0.9% NS 41 ML
     Route: 041
  6. SODIUM CHLORIDE [Suspect]
     Active Substance: SODIUM CHLORIDE
     Dosage: TOPOTECAN 0.5 MG + 0.9% NS 20 ML
     Route: 041
     Dates: start: 20210522, end: 20210526
  7. SODIUM CHLORIDE [Suspect]
     Active Substance: SODIUM CHLORIDE
     Dosage: DOSE RE-INTRODUCED; TOPOTECAN + 0.9% NS
     Route: 041
  8. SODIUM CHLORIDE [Suspect]
     Active Substance: SODIUM CHLORIDE
     Dosage: ONDANSETRON INJECTION 3.4 MG + 0.9% NS 25 ML
     Route: 042
     Dates: start: 20210522, end: 20210526
  9. SODIUM CHLORIDE [Suspect]
     Active Substance: SODIUM CHLORIDE
     Dosage: DOSE RE-INTRODUCED; ONDANSETRON + 0.9% NS
     Route: 042
  10. TOPOTECAN HYDROCHLORIDE [Suspect]
     Active Substance: TOPOTECAN HYDROCHLORIDE
     Indication: Neuroblastoma recurrent
     Dosage: TOPOTECAN 0.5 MG + 0.9% NS 20 ML; DAY 1 TO 5
     Route: 041
     Dates: start: 20210522, end: 20210526
  11. TOPOTECAN HYDROCHLORIDE [Suspect]
     Active Substance: TOPOTECAN HYDROCHLORIDE
     Dosage: DOSE RE-INTRODUCED; TOPOTECAN + 0.9% NS
     Route: 041
  12. TOPOTECAN HYDROCHLORIDE [Suspect]
     Active Substance: TOPOTECAN HYDROCHLORIDE
     Dosage: PRIOR DRUG
     Route: 041
  13. ONDANSETRON HYDROCHLORIDE [Suspect]
     Active Substance: ONDANSETRON HYDROCHLORIDE
     Indication: Vomiting
     Dosage: Q8 HRS, GIVEN 30 MINUTES BEFORE DAILY CHEMOTHERAPY; ONDANSETRON (3.4MG) + SODIUM CHLORIDE (25ML);
     Route: 042
     Dates: start: 20210522, end: 20210526
  14. ONDANSETRON HYDROCHLORIDE [Suspect]
     Active Substance: ONDANSETRON HYDROCHLORIDE
     Dosage: DOSE RE-INTRODUCED; ONDANSETRON + 0.9% NS
     Route: 042
  15. MESNA [Suspect]
     Active Substance: MESNA
     Indication: Cystitis haemorrhagic
     Dosage: BEFORE AND AFTER CYCLOPHOSPHAMIDE USE
     Route: 042
     Dates: start: 20210522, end: 20210526
  16. MESNA [Suspect]
     Active Substance: MESNA
     Dosage: DOSE RE-INTRODUCED
     Route: 041

REACTIONS (3)
  - Pancytopenia [Recovering/Resolving]
  - Pyrexia [Recovered/Resolved]
  - Pancytopenia [Recovered/Resolved]

NARRATIVE: CASE EVENT DATE: 20210601
